FAERS Safety Report 16890800 (Version 1)
Quarter: 2019Q4

REPORT INFORMATION
  Report Type: Spontaneous
  Country: US (occurrence: US)
  Receive Date: 20191005
  Receipt Date: 20191005
  Transmission Date: 20200122
  Serious: Yes (Disabling)
  Sender: FDA-Public Use
  Company Number: None

PATIENT
  Age: 52 Year
  Sex: Female
  Weight: 105.75 kg

DRUGS (1)
  1. LOSARTAN 50MG [Suspect]
     Active Substance: LOSARTAN
     Indication: BLOOD PRESSURE MEASUREMENT
     Dosage: ?          QUANTITY:1 TABLET(S);?
     Route: 048
     Dates: start: 20190821, end: 20191005

REACTIONS (9)
  - Chest pain [None]
  - Oropharyngeal pain [None]
  - Recalled product administered [None]
  - Back pain [None]
  - Gastrooesophageal reflux disease [None]
  - Throat irritation [None]
  - Insomnia [None]
  - Appetite disorder [None]
  - Muscle spasms [None]

NARRATIVE: CASE EVENT DATE: 20190821
